FAERS Safety Report 10190807 (Version 5)
Quarter: 2014Q3

REPORT INFORMATION
  Report Type: Spontaneous
  Country: US (occurrence: US)
  Receive Date: 20140523
  Receipt Date: 20140909
  Transmission Date: 20150326
  Serious: Yes (Death)
  Sender: FDA-Public Use
  Company Number: PHEH2014US009468

PATIENT
  Age: 85 Year
  Sex: Male
  Weight: 68.5 kg

DRUGS (1)
  1. EXJADE [Suspect]
     Active Substance: DEFERASIROX
     Indication: MYELODYSPLASTIC SYNDROME
     Dosage: 500 MG, UNK
     Route: 048
     Dates: end: 201404

REACTIONS (5)
  - Cardiac failure congestive [Fatal]
  - Hepatic enzyme increased [Fatal]
  - Blood creatinine increased [Unknown]
  - Renal failure acute [Fatal]
  - Malaise [Unknown]

NARRATIVE: CASE EVENT DATE: 20140418
